FAERS Safety Report 9097091 (Version 1)
Quarter: 2013Q1

REPORT INFORMATION
  Report Type: Spontaneous
  Country: US (occurrence: None)
  Receive Date: 20130125
  Receipt Date: 20130125
  Transmission Date: 20140127
  Serious: Yes (Hospitalization)
  Sender: FDA-Public Use
  Company Number: 2013US-004529

PATIENT
  Age: 67 Year
  Sex: Female

DRUGS (1)
  1. OMONTYS (PEGINESATIDE) SOLUTION FOR INJECTION [Suspect]
     Indication: NEPHROGENIC ANAEMIA
     Dosage: 5 MG,  UNK
     Dates: start: 20121205, end: 20121205

REACTIONS (2)
  - Subdural haemorrhage [None]
  - Cerebrovascular accident [None]
